FAERS Safety Report 7254091-3 (Version None)
Quarter: 2011Q1

REPORT INFORMATION
  Report Type: 
  Country: None (occurrence: None)
  Receive Date: 20110129
  Receipt Date: 20100422
  Transmission Date: 20110831
  Serious: No
  Sender: FDA-Public Use
  Company Number: US-ABBOTT-10P-163-0640234-00

PATIENT
  Sex: Male
  Weight: 105.33 kg

DRUGS (2)
  1. C PAP MACHINE [Concomitant]
     Indication: PRODUCT USED FOR UNKNOWN INDICATION
  2. HUMIRA [Suspect]
     Indication: CROHN'S DISEASE
     Dates: start: 20100312

REACTIONS (2)
  - WEIGHT INCREASED [None]
  - OROPHARYNGEAL PAIN [None]
